FAERS Safety Report 13025285 (Version 1)
Quarter: 2016Q4

REPORT INFORMATION
  Report Type: Spontaneous
  Country: US (occurrence: US)
  Receive Date: 20161214
  Receipt Date: 20161214
  Transmission Date: 20170207
  Serious: No
  Sender: FDA-Public Use
  Company Number: US-BIOGEN-2016BI00327375

PATIENT
  Age: 49 Year
  Sex: Female

DRUGS (1)
  1. TYSABRI [Suspect]
     Active Substance: NATALIZUMAB
     Indication: MULTIPLE SCLEROSIS
     Route: 042
     Dates: start: 20140429, end: 201411

REACTIONS (3)
  - Injection site reaction [Recovered/Resolved]
  - Injection site rash [Recovered/Resolved]
  - Injection site mass [Recovered/Resolved]

NARRATIVE: CASE EVENT DATE: 20140429
